FAERS Safety Report 19790162 (Version 1)
Quarter: 2021Q3

REPORT INFORMATION
  Report Type: Other
  Country: JP (occurrence: JP)
  Receive Date: 20210906
  Receipt Date: 20210906
  Transmission Date: 20211014
  Serious: Yes (Death)
  Sender: FDA-Public Use
  Company Number: JP-B.BRAUN MEDICAL INC.-2118011

PATIENT
  Age: 79 Year
  Sex: Male

DRUGS (6)
  1. NAFAMOSTAT [Concomitant]
     Active Substance: NAFAMOSTAT
  2. TOCILIZUMAB. [Concomitant]
     Active Substance: TOCILIZUMAB
     Route: 042
  3. REMDESIFIR [Concomitant]
     Route: 042
  4. HEPARIN SODIUM IN DEXTROSE [Suspect]
     Active Substance: HEPARIN SODIUM
     Route: 042
  5. METHYLPREDNISOLONE. [Concomitant]
     Active Substance: METHYLPREDNISOLONE
  6. DEXAMETHASONE. [Concomitant]
     Active Substance: DEXAMETHASONE

REACTIONS (3)
  - Extravasation blood [None]
  - Shock haemorrhagic [None]
  - Retroperitoneal haematoma [None]
